FAERS Safety Report 6105662-9 (Version None)
Quarter: 2009Q1

REPORT INFORMATION
  Report Type: 
  Country: None (occurrence: None)
  Receive Date: 20090306
  Receipt Date: 20090303
  Transmission Date: 20090719
  Serious: Yes (Other)
  Sender: FDA-Public Use
  Company Number: JP-ASTRAZENECA-2009AP01607

PATIENT
  Age: 54 Year
  Sex: Male
  Weight: 85 kg

DRUGS (5)
  1. DIPRIVAN [Suspect]
     Indication: INDUCTION AND MAINTENANCE OF ANAESTHESIA
     Dosage: DOSE UNKNOWN
     Route: 042
     Dates: start: 20090220, end: 20090220
  2. MUSCULAX [Concomitant]
     Indication: HYPOTONIA
     Dosage: DOSE UNKNOWN
     Route: 042
     Dates: start: 20090220, end: 20090220
  3. FENTANYL-100 [Concomitant]
     Indication: INDUCTION AND MAINTENANCE OF ANAESTHESIA
     Dosage: DOSE UNKNOWN
     Route: 042
     Dates: start: 20090220, end: 20090220
  4. LAUGHING GAS [Concomitant]
     Indication: MAINTENANCE OF ANAESTHESIA
     Dosage: DOSE UNKNOWN
     Route: 055
     Dates: start: 20090220, end: 20090220
  5. SEVOFLURANE [Concomitant]
     Indication: MAINTENANCE OF ANAESTHESIA
     Dosage: DOSE UNKNOWN
     Route: 055
     Dates: start: 20090220, end: 20090220

REACTIONS (2)
  - BLOOD PRESSURE DECREASED [None]
  - SHOCK [None]
